FAERS Safety Report 20257685 (Version 1)
Quarter: 2021Q4

REPORT INFORMATION
  Report Type: Spontaneous
  Country: FR (occurrence: FR)
  Receive Date: 20211230
  Receipt Date: 20211230
  Transmission Date: 20220303
  Serious: Yes (Other)
  Sender: FDA-Public Use
  Company Number: FR-BAYER-2021A262453

PATIENT
  Age: 13 Year
  Sex: Female

DRUGS (4)
  1. SERTRALINE [Suspect]
     Active Substance: SERTRALINE HYDROCHLORIDE
     Dosage: UNK
  2. HERBS\MELATONIN [Suspect]
     Active Substance: HERBS\MELATONIN
     Dosage: 10 DF, ONCE
  3. ASCORBIC ACID [Suspect]
     Active Substance: ASCORBIC ACID
     Dosage: UNK
  4. MAGNESIUM\PYRIDOXINE [Suspect]
     Active Substance: MAGNESIUM\PYRIDOXINE
     Dosage: UNK

REACTIONS (4)
  - Intentional product use issue [Unknown]
  - Suicide attempt [Unknown]
  - Blood pressure increased [Unknown]
  - Tremor [Unknown]

NARRATIVE: CASE EVENT DATE: 20210507
